FAERS Safety Report 4470772-9 (Version None)
Quarter: 2004Q4

REPORT INFORMATION
  Report Type: 
  Country: None (occurrence: None)
  Receive Date: 20041006
  Receipt Date: 20040930
  Transmission Date: 20050328
  Serious: Yes (Hospitalization)
  Sender: FDA-Public Use
  Company Number: NLWYE081601OCT04

PATIENT
  Age: 28 Year
  Sex: Female

DRUGS (4)
  1. EFFEXOR XR [Suspect]
     Indication: DEPRESSION
     Dosage: 75 MG 1X PER 1 DAY ORAL; SEE IMAGE
     Route: 048
     Dates: start: 20040101, end: 20040101
  2. EFFEXOR XR [Suspect]
     Indication: DEPRESSION
     Dosage: 75 MG 1X PER 1 DAY ORAL; SEE IMAGE
     Route: 048
     Dates: start: 20040301, end: 20040101
  3. EFFEXOR XR [Suspect]
     Indication: DEPRESSION
     Dosage: 75 MG 1X PER 1 DAY ORAL; SEE IMAGE
     Route: 048
     Dates: start: 20040101, end: 20040929
  4. EFFEXOR XR [Suspect]
     Indication: DEPRESSION
     Dosage: 75 MG 1X PER 1 DAY ORAL; SEE IMAGE
     Route: 048
     Dates: start: 20040930, end: 20040930

REACTIONS (5)
  - DEPRESSED MOOD [None]
  - DRUG WITHDRAWAL SYNDROME [None]
  - INTENTIONAL OVERDOSE [None]
  - PANIC ATTACK [None]
  - SUICIDE ATTEMPT [None]
